FAERS Safety Report 11528902 (Version 1)
Quarter: 2015Q3

REPORT INFORMATION
  Report Type: Spontaneous
  Country: US (occurrence: US)
  Receive Date: 20150921
  Receipt Date: 20150921
  Transmission Date: 20151125
  Serious: No
  Sender: FDA-Public Use
  Company Number: US-PFIZER INC-2015311945

PATIENT
  Sex: Female

DRUGS (2)
  1. PREMARIN [Suspect]
     Active Substance: ESTROGENS, CONJUGATED
     Indication: VAGINAL PROLAPSE
     Dosage: UNK
  2. COUMADIN [Interacting]
     Active Substance: WARFARIN SODIUM
     Dosage: UNK

REACTIONS (2)
  - International normalised ratio increased [Unknown]
  - Drug interaction [Unknown]
